FAERS Safety Report 9852456 (Version 4)
Quarter: 2014Q1

REPORT INFORMATION
  Report Type: Report from Study
  Country: CA (occurrence: CA)
  Receive Date: 20140129
  Receipt Date: 20140324
  Transmission Date: 20141002
  Serious: Yes (Hospitalization)
  Sender: FDA-Public Use
  Company Number: CA-BRISTOL-MYERS SQUIBB COMPANY-19715648

PATIENT
  Age: 53 Year
  Sex: Female

DRUGS (9)
  1. ORENCIA [Suspect]
     Indication: RHEUMATOID ARTHRITIS
     Dosage: 1DF=1000 UNITS NOS?BTCH NO.3E73716, EXP DT:MAR2016
     Dates: start: 20090402
  2. METHOTREXATE [Concomitant]
  3. PREDNISOLONE [Concomitant]
  4. CEREBREX [Concomitant]
  5. SINGULAIR [Concomitant]
  6. ACETAMINOPHEN [Concomitant]
  7. MAXALT [Concomitant]
  8. NEXIUM [Concomitant]
  9. MICARDIS [Concomitant]

REACTIONS (4)
  - Bronchitis [Recovering/Resolving]
  - Haemorrhoids [Recovering/Resolving]
  - Urinary tract disorder [Recovering/Resolving]
  - Suicide attempt [Unknown]
